FAERS Safety Report 20634086 (Version 2)
Quarter: 2022Q3

REPORT INFORMATION
  Report Type: Spontaneous
  Country: None (occurrence: CN)
  Receive Date: 20220324
  Receipt Date: 20220720
  Transmission Date: 20221027
  Serious: Yes (Hospitalization)
  Sender: FDA-Public Use
  Company Number: CN-Jiangsu Hengrui Medicine Co., Ltd.-2127100

PATIENT
  Age: 32 Year
  Sex: Female
  Weight: 66 kg

DRUGS (2)
  1. CYCLOPHOSPHAMIDE [Suspect]
     Active Substance: CYCLOPHOSPHAMIDE
     Indication: Breast cancer female
     Dates: start: 20220221, end: 20220221
  2. EPIRUBICIN HYDROCHLORIDE [Suspect]
     Active Substance: EPIRUBICIN HYDROCHLORIDE
     Dates: start: 20220221, end: 20220221

REACTIONS (2)
  - Gastrooesophageal reflux disease [Recovering/Resolving]
  - Stress ulcer [Recovering/Resolving]

NARRATIVE: CASE EVENT DATE: 20220221
